FAERS Safety Report 22192073 (Version 5)
Quarter: 2024Q4

REPORT INFORMATION
  Report Type: Spontaneous
  Country: US (occurrence: US)
  Receive Date: 20230410
  Receipt Date: 20241212
  Transmission Date: 20250115
  Serious: Yes (Hospitalization)
  Sender: PFIZER
  Company Number: US-PFIZER INC-PV202300064869

PATIENT
  Age: 87 Year
  Sex: Female
  Weight: 90.703 kg

DRUGS (3)
  1. IBRANCE [Suspect]
     Active Substance: PALBOCICLIB
     Indication: Breast cancer
     Dosage: TAKE 75MG DAILY FOR 21 DAYS THEN OFF FOR 7 DAYS
  2. IBRANCE [Suspect]
     Active Substance: PALBOCICLIB
     Dosage: DAILY ON FOR 21 DAYS THEN OFF FOR 7 DAYS THEN REPEAT
     Route: 048
     Dates: start: 202207
  3. LETROZOLE [Concomitant]
     Active Substance: LETROZOLE
     Indication: Breast cancer
     Dosage: UNK, 1X/DAY
     Dates: start: 202203

REACTIONS (1)
  - Influenza [Unknown]
